FAERS Safety Report 18635359 (Version 2)
Quarter: 2021Q1

REPORT INFORMATION
  Report Type: Spontaneous
  Country: US (occurrence: US)
  Receive Date: 20201218
  Receipt Date: 20210319
  Transmission Date: 20210419
  Serious: No
  Sender: FDA-Public Use
  Company Number: US-THERAPEUTICSMD-2020TMD03865

PATIENT
  Sex: Female
  Weight: 68.48 kg

DRUGS (3)
  1. IMVEXXY [Suspect]
     Active Substance: ESTRADIOL
     Dosage: 10 ?G, TAKEN ^WHEN REMEMBERED, ALL GIVEN TIMES^
     Route: 067
  2. SIMVASTATIN. [Concomitant]
     Active Substance: SIMVASTATIN
  3. UNSPECIFIED THYROID REPLACEMENT [Concomitant]

REACTIONS (3)
  - Intentional product use issue [Not Recovered/Not Resolved]
  - Off label use [Not Recovered/Not Resolved]
  - Pruritus [Not Recovered/Not Resolved]
